FAERS Safety Report 24825910 (Version 2)
Quarter: 2025Q1

REPORT INFORMATION
  Report Type: Spontaneous
  Country: BR (occurrence: BR)
  Receive Date: 20250109
  Receipt Date: 20250304
  Transmission Date: 20250409
  Serious: Yes (Hospitalization, Other)
  Sender: ELI LILLY AND COMPANY
  Company Number: BR-ELI_LILLY_AND_COMPANY-BR202501002635

PATIENT
  Sex: Female

DRUGS (2)
  1. HUMULIN N [Suspect]
     Active Substance: INSULIN HUMAN
     Indication: Product used for unknown indication
     Dosage: 12 U, DAILY
     Route: 065
     Dates: start: 2009
  2. HUMULIN N [Suspect]
     Active Substance: INSULIN HUMAN
     Dosage: 24 U, DAILY
     Route: 065

REACTIONS (7)
  - Vomiting [Unknown]
  - Feeding disorder [Unknown]
  - Syncope [Unknown]
  - Blood glucose increased [Unknown]
  - Asthenia [Unknown]
  - Nervousness [Unknown]
  - Illness [Unknown]

NARRATIVE: CASE EVENT DATE: 20240301
